FAERS Safety Report 23179044 (Version 1)
Quarter: 2023Q4

REPORT INFORMATION
  Report Type: Spontaneous
  Country: FR (occurrence: FR)
  Receive Date: 20231113
  Receipt Date: 20231113
  Transmission Date: 20240110
  Serious: Yes (Hospitalization, Other)
  Sender: FDA-Public Use
  Company Number: None

PATIENT
  Age: 80 Year
  Sex: Female

DRUGS (11)
  1. LINEZOLID [Suspect]
     Active Substance: LINEZOLID
     Indication: Infection
     Dosage: 1 DF, 2X/DAY
     Route: 048
     Dates: start: 20231006, end: 20231019
  2. LORMETAZEPAM [Concomitant]
     Active Substance: LORMETAZEPAM
     Indication: Insomnia
     Dosage: 1 MG, 1X/DAY
     Route: 048
  3. APIXABAN [Concomitant]
     Active Substance: APIXABAN
     Indication: Atrial fibrillation
     Dosage: 2.5 MG, 2X/DAY
     Route: 048
  4. MORPHINE SULFATE [Concomitant]
     Active Substance: MORPHINE SULFATE
     Indication: Pain
     Dosage: 1 DF, AS NEEDED
     Route: 048
  5. LANSOPRAZOLE [Concomitant]
     Active Substance: LANSOPRAZOLE
     Dosage: 30 MG, 1X/DAY
     Route: 048
  6. CALCIUM CARBONATE [Concomitant]
     Active Substance: CALCIUM CARBONATE
     Indication: Calcium deficiency
     Dosage: 500 MG, 1X/DAY
     Route: 048
  7. ACETAMINOPHEN [Concomitant]
     Active Substance: ACETAMINOPHEN
     Indication: Pain
     Dosage: 500 MG, 3X/DAY
     Route: 048
  8. FUROSEMIDE [Concomitant]
     Active Substance: FUROSEMIDE
     Dosage: 20 MG, 2X/DAY
     Route: 048
  9. VITAMIN D3 [Concomitant]
     Active Substance: CHOLECALCIFEROL
     Indication: Vitamin D deficiency
     Dosage: 4000 IU, 1X/DAY
     Route: 048
  10. POTASSIUM [Concomitant]
     Active Substance: POTASSIUM
     Indication: Hypokalaemia
     Dosage: 1200 MG, 1X/DAY
     Route: 048
  11. FENTANYL [Concomitant]
     Active Substance: FENTANYL\FENTANYL CITRATE
     Indication: Pain
     Dosage: 100 UG, 3X/DAY
     Route: 062

REACTIONS (4)
  - Thrombocytopenia [Recovering/Resolving]
  - Anaemia [Recovering/Resolving]
  - Bicytopenia [Recovering/Resolving]
  - C-reactive protein increased [Recovering/Resolving]

NARRATIVE: CASE EVENT DATE: 20231011
